APPROVED DRUG PRODUCT: GLYBURIDE
Active Ingredient: GLYBURIDE
Strength: 3MG
Dosage Form/Route: TABLET;ORAL
Application: A075947 | Product #002
Applicant: ACTAVIS ELIZABETH LLC
Approved: Nov 14, 2002 | RLD: No | RS: No | Type: DISCN